FAERS Safety Report 10638823 (Version 1)
Quarter: 2014Q4

REPORT INFORMATION
  Report Type: Spontaneous
  Country: US (occurrence: US)
  Receive Date: 20141208
  Receipt Date: 20141208
  Transmission Date: 20150529
  Serious: Yes (Other)
  Sender: FDA-Public Use
  Company Number: US-FRI-1000072785

PATIENT
  Sex: Female

DRUGS (3)
  1. TUDORZA PRESSAIR [Suspect]
     Active Substance: ACLIDINIUM BROMIDE
  2. DALIRESP [Suspect]
     Active Substance: ROFLUMILAST
  3. PREDATOR [Suspect]
     Active Substance: LIDOCAINE HYDROCHLORIDE

REACTIONS (1)
  - Urinary retention [Unknown]
